FAERS Safety Report 20876491 (Version 1)
Quarter: 2022Q2

REPORT INFORMATION
  Report Type: Spontaneous
  Country: US (occurrence: None)
  Receive Date: 20220525
  Receipt Date: 20220525
  Transmission Date: 20220720
  Serious: No
  Sender: FDA-Public Use
  Company Number: None

PATIENT
  Age: 56 Year
  Sex: Male

DRUGS (1)
  1. AFINITOR [Suspect]
     Active Substance: EVEROLIMUS
     Dosage: FREQUENCY : DAILY;?
     Route: 048

REACTIONS (6)
  - Renal disorder [None]
  - Obstruction [None]
  - Blood urine present [None]
  - Haemorrhage urinary tract [None]
  - Dysuria [None]
  - Renal haemorrhage [None]

NARRATIVE: CASE EVENT DATE: 20220525
